FAERS Safety Report 4602780-9 (Version None)
Quarter: 2005Q1

REPORT INFORMATION
  Report Type: 
  Country: None (occurrence: None)
  Receive Date: 20050309
  Receipt Date: 20050225
  Transmission Date: 20050727
  Serious: Yes (Hospitalization)
  Sender: FDA-Public Use
  Company Number: FR-JNJFOC-20050300008

PATIENT
  Age: 81 Year
  Sex: Female

DRUGS (6)
  1. HALDOL [Suspect]
     Indication: DRUG USE FOR UNKNOWN INDICATION
     Route: 049
  2. CORDARONE [Concomitant]
  3. HYPERIUM [Concomitant]
  4. REMINYL [Concomitant]
     Indication: DEMENTIA
  5. SEROPRAM [Concomitant]
  6. IKOREL [Concomitant]

REACTIONS (7)
  - AKINESIA [None]
  - COGNITIVE DISORDER [None]
  - DEMENTIA [None]
  - DISORIENTATION [None]
  - GAIT DISTURBANCE [None]
  - MUSCLE RIGIDITY [None]
  - TREMOR [None]
